FAERS Safety Report 8188651-2 (Version None)
Quarter: 2012Q1

REPORT INFORMATION
  Report Type: 
  Country: None (occurrence: None)
  Receive Date: 20120306
  Receipt Date: 20120228
  Transmission Date: 20120608
  Serious: Yes (Other)
  Sender: FDA-Public Use
  Company Number: SE-JNJFOC-20120301358

PATIENT
  Age: 44 Year
  Sex: Female

DRUGS (1)
  1. IBUPROFEN [Suspect]
     Indication: PRODUCT USED FOR UNKNOWN INDICATION
     Route: 048
     Dates: start: 20111001, end: 20111001

REACTIONS (10)
  - PALPITATIONS [None]
  - VISUAL IMPAIRMENT [None]
  - DIZZINESS [None]
  - ACCIDENTAL OVERDOSE [None]
  - ALANINE AMINOTRANSFERASE INCREASED [None]
  - NAUSEA [None]
  - TOXICITY TO VARIOUS AGENTS [None]
  - VOMITING [None]
  - DYSPNOEA [None]
  - MALAISE [None]
